FAERS Safety Report 26100405 (Version 1)
Quarter: 2025Q4

REPORT INFORMATION
  Report Type: Spontaneous
  Country: KR (occurrence: KR)
  Receive Date: 20251128
  Receipt Date: 20251128
  Transmission Date: 20260117
  Serious: Yes (Death, Other)
  Sender: ALKEM
  Company Number: KR-ALKEM LABORATORIES LIMITED-KR-ALKEM-2025-12824

PATIENT
  Age: 19 Year

DRUGS (1)
  1. LIDOCAINE [Suspect]
     Active Substance: LIDOCAINE
     Indication: Pain management
     Dosage: 1200 MILLIGRAM
     Route: 061

REACTIONS (2)
  - Local anaesthetic systemic toxicity [Fatal]
  - Overdose [Fatal]
